FAERS Safety Report 7076821-6 (Version None)
Quarter: 2010Q4

REPORT INFORMATION
  Report Type: 
  Country: None (occurrence: None)
  Receive Date: 20101101
  Receipt Date: 20101007
  Transmission Date: 20110411
  Serious: Yes (Hospitalization)
  Sender: FDA-Public Use
  Company Number: US-BAYER-201010205NA

PATIENT
  Age: 28 Year
  Sex: Female
  Weight: 68 kg

DRUGS (6)
  1. YAZ [Suspect]
     Indication: MENSTRUAL DISORDER
     Dosage: PHARMACY RECORDS: 21 JAN 2009 AND 23 FEB 2009.
     Route: 048
     Dates: start: 20090101, end: 20090301
  2. IMTREX [Concomitant]
  3. ALBUTEROL [Concomitant]
  4. COMBIVENT [Concomitant]
     Indication: ASTHMA
  5. PROTONIX [Concomitant]
  6. COLACE [Concomitant]

REACTIONS (4)
  - AMNESIA [None]
  - CEREBROVASCULAR ACCIDENT [None]
  - HEMIPLEGIA [None]
  - SPEECH DISORDER [None]
